FAERS Safety Report 4697337-8 (Version None)
Quarter: 2005Q2

REPORT INFORMATION
  Report Type: 
  Country: None (occurrence: None)
  Receive Date: 20050620
  Receipt Date: 20050607
  Transmission Date: 20051028
  Serious: No
  Sender: FDA-Public Use
  Company Number: 11414

PATIENT
  Age: 67 Year
  Sex: Male

DRUGS (1)
  1. AMIODARONE HCL [Suspect]
     Indication: ATRIAL FIBRILLATION
     Dosage: 200 MG

REACTIONS (4)
  - OPTIC NEUROPATHY [None]
  - PAPILLOEDEMA [None]
  - SUPRAVENTRICULAR EXTRASYSTOLES [None]
  - VISUAL FIELD DEFECT [None]
